FAERS Safety Report 24367448 (Version 1)
Quarter: 2024Q3

REPORT INFORMATION
  Report Type: Spontaneous
  Country: US (occurrence: US)
  Receive Date: 20240926
  Receipt Date: 20240926
  Transmission Date: 20241016
  Serious: Yes (Other)
  Sender: PFIZER
  Company Number: US-PFIZER INC-202400262295

PATIENT
  Sex: Female

DRUGS (2)
  1. NURTEC ODT [Suspect]
     Active Substance: RIMEGEPANT SULFATE
     Indication: Migraine prophylaxis
     Dosage: UNK
  2. OXITRIPTAN [Suspect]
     Active Substance: OXITRIPTAN
     Indication: Migraine prophylaxis
     Dosage: UNK

REACTIONS (1)
  - Blood pressure systolic increased [Unknown]
